FAERS Safety Report 7429402-6 (Version None)
Quarter: 2011Q2

REPORT INFORMATION
  Report Type: 
  Country: None (occurrence: None)
  Receive Date: 20110421
  Receipt Date: 20110414
  Transmission Date: 20111010
  Serious: Yes (Other)
  Sender: FDA-Public Use
  Company Number: B0714554A

PATIENT
  Sex: Female

DRUGS (1)
  1. NIQUITINMINIS [Suspect]

REACTIONS (4)
  - VERTIGO [None]
  - ASPHYXIA [None]
  - CHEST PAIN [None]
  - SALIVARY HYPERSECRETION [None]
